FAERS Safety Report 17850023 (Version 1)
Quarter: 2020Q2

REPORT INFORMATION
  Report Type: Spontaneous
  Country: GR (occurrence: GR)
  Receive Date: 20200602
  Receipt Date: 20200602
  Transmission Date: 20200714
  Serious: Yes (Disabling)
  Sender: FDA-Public Use
  Company Number: GR-KOWA-20EU001467

PATIENT

DRUGS (5)
  1. PLAVIX [Concomitant]
     Active Substance: CLOPIDOGREL BISULFATE
     Indication: CARDIAC DISORDER
     Dosage: 1 DOSAGE FORM, QD
     Route: 065
  2. FILICINE [Concomitant]
     Indication: THALASSAEMIA MINOR
     Dosage: 1 DOSAGE FORM, QD
     Route: 065
  3. AMLOPEN [Concomitant]
     Indication: BLOOD PRESSURE INCREASED
     Dosage: 1 DOSAGE FORM, QD
     Route: 065
  4. CONCOR [Concomitant]
     Active Substance: BISOPROLOL FUMARATE
     Indication: PRODUCT USED FOR UNKNOWN INDICATION
     Dosage: 0.5 DOSAGE FORM, QD
     Route: 065
  5. PITAVA [Suspect]
     Active Substance: PITAVASTATIN
     Indication: HYPERLIPIDAEMIA
     Dosage: 1 MILLIGRAM, QD
     Route: 048
     Dates: start: 2019, end: 2020

REACTIONS (1)
  - Pain [Not Recovered/Not Resolved]
